FAERS Safety Report 7524068-9 (Version None)
Quarter: 2011Q2

REPORT INFORMATION
  Report Type: 
  Country: None (occurrence: None)
  Receive Date: 20110605
  Receipt Date: 20110527
  Transmission Date: 20111010
  Serious: Yes (Hospitalization, Other)
  Sender: FDA-Public Use
  Company Number: US-BRISTOL-MYERS SQUIBB COMPANY-15784846

PATIENT
  Age: 65 Year
  Sex: Male
  Weight: 93 kg

DRUGS (2)
  1. CISPLATIN [Suspect]
     Indication: OESOPHAGEAL ADENOCARCINOMA
     Dosage: TAKEN OFF STUDY ON 27-MAY-2011
     Dates: start: 20110503, end: 20110511
  2. TAXOL [Suspect]
     Indication: OESOPHAGEAL ADENOCARCINOMA
     Dosage: TAKEN OFF STUDY ON 27-MAY-2011
     Dates: start: 20110503, end: 20110511

REACTIONS (4)
  - OESOPHAGEAL PAIN [None]
  - DEVICE RELATED INFECTION [None]
  - HYPOALBUMINAEMIA [None]
  - BLOOD CREATININE INCREASED [None]
